FAERS Safety Report 7880330-1 (Version None)
Quarter: 2011Q4

REPORT INFORMATION
  Report Type: 
  Country: None (occurrence: None)
  Receive Date: 20111101
  Receipt Date: 20111021
  Transmission Date: 20120403
  Serious: No
  Sender: FDA-Public Use
  Company Number: US-B.I. PHARMACEUTICALS,INC./RIDGEFIELD-2011-BP-25096BP

PATIENT
  Age: 70 Year
  Sex: Female

DRUGS (4)
  1. ATENOLOL [Concomitant]
     Indication: ATRIAL FIBRILLATION
  2. PRADAXA [Suspect]
     Indication: ATRIAL FIBRILLATION
     Dosage: 300 MG
     Route: 048
     Dates: start: 20110401, end: 20111018
  3. DIGOXIN [Concomitant]
     Indication: ATRIAL FIBRILLATION
  4. EYE GTTS [Concomitant]
     Indication: GLAUCOMA

REACTIONS (3)
  - URTICARIA [None]
  - BACK PAIN [None]
  - DYSPEPSIA [None]
